FAERS Safety Report 9764169 (Version 2)
Quarter: 2013Q4

REPORT INFORMATION
  Report Type: Report from Study
  Country: PL (occurrence: PL)
  Receive Date: 20131216
  Receipt Date: 20131224
  Transmission Date: 20140711
  Serious: Yes (Hospitalization)
  Sender: FDA-Public Use
  Company Number: PHHY2013PL145974

PATIENT
  Age: 61 Year
  Sex: Male

DRUGS (1)
  1. TASIGNA [Suspect]
     Dosage: 800 MG, DAILY
     Dates: start: 20110215

REACTIONS (4)
  - Ischaemic stroke [Unknown]
  - Locked-in syndrome [Unknown]
  - Paralysis [Unknown]
  - Dysphagia [Unknown]
